FAERS Safety Report 4898709-9 (Version None)
Quarter: 2006Q1

REPORT INFORMATION
  Report Type: 
  Country: None (occurrence: None)
  Receive Date: 20060131
  Receipt Date: 20060118
  Transmission Date: 20060701
  Serious: Yes (Other)
  Sender: FDA-Public Use
  Company Number: 2006009675

PATIENT
  Age: 70 Year
  Sex: Male

DRUGS (11)
  1. NEURONTIN [Suspect]
     Indication: HERPES ZOSTER
     Dosage: 2500 MG (500 MG, 5 IN 1 D),
     Dates: start: 20050101
  2. ENALAPRIL MALEATE [Concomitant]
  3. TRIAMTERENE (TRIAMTERENE) [Concomitant]
  4. PINDOLOL [Concomitant]
  5. LIPITOR [Concomitant]
  6. PREVACID [Concomitant]
  7. TAMSULOSIN HYDROCHLORIDE (TAMSULOSIN HYDROCHLORIDE) [Concomitant]
  8. PROSCAR [Concomitant]
  9. AMBIEN [Concomitant]
  10. ALLEGRA-D 12 HOUR [Concomitant]
  11. ASPIRIN [Concomitant]

REACTIONS (3)
  - DIABETES MELLITUS INSULIN-DEPENDENT [None]
  - FALL [None]
  - HEAD INJURY [None]
